FAERS Safety Report 7585781-0 (Version None)
Quarter: 2011Q3

REPORT INFORMATION
  Report Type: 
  Country: None (occurrence: None)
  Receive Date: 20110701
  Receipt Date: 20110621
  Transmission Date: 20111222
  Serious: Yes (Hospitalization, Other)
  Sender: FDA-Public Use
  Company Number: US-BAYER-201018864NA

PATIENT
  Age: 52 Year
  Sex: Female
  Weight: 48.98 kg

DRUGS (13)
  1. ZOFRAN [Concomitant]
     Indication: VOMITING
  2. AMBIEN [Concomitant]
     Dosage: UNK
     Dates: start: 20080527
  3. KLOR-CON [Concomitant]
     Dosage: UNK
     Route: 048
     Dates: start: 20080528
  4. YASMIN [Suspect]
     Indication: PRODUCT USED FOR UNKNOWN INDICATION
     Dosage: UNK UNK, UNK
     Route: 048
     Dates: start: 20040201, end: 20080101
  5. ZOFRAN [Concomitant]
     Indication: NAUSEA
     Dosage: UNK
     Dates: start: 20080527
  6. PHENTERMINE [Concomitant]
     Dosage: UNK
     Dates: start: 19990101, end: 20080501
  7. BACLOFEN [Concomitant]
     Indication: MUSCLE SPASTICITY
     Dosage: 10 MG, TID
     Dates: start: 20080101, end: 20100601
  8. CELEXA [Concomitant]
     Dosage: 20 MG, HS
     Dates: start: 20100601
  9. THYROID TAB [Concomitant]
  10. BACLOFEN [Concomitant]
     Dosage: 5 MG, TID
     Dates: start: 20100601
  11. KEPPRA [Concomitant]
     Dosage: 500 MG, BID
     Dates: start: 20100601
  12. TYLENOL (CAPLET) [Concomitant]
     Indication: PAIN
     Dosage: UNK
     Dates: start: 20080527
  13. DARVOCET-N 50 [Concomitant]
     Indication: PAIN
     Dosage: UNK
     Dates: start: 20080527

REACTIONS (6)
  - PARALYSIS [None]
  - HEMIPARESIS [None]
  - CEREBROVASCULAR ACCIDENT [None]
  - NEGLECT OF PERSONAL APPEARANCE [None]
  - HEMIPLEGIA [None]
  - HEMIANOPIA HOMONYMOUS [None]
